FAERS Safety Report 8276830-5 (Version None)
Quarter: 2012Q2

REPORT INFORMATION
  Report Type: 
  Country: None (occurrence: None)
  Receive Date: 20120412
  Receipt Date: 20120329
  Transmission Date: 20120825
  Serious: Yes (Other)
  Sender: FDA-Public Use
  Company Number: BR-RANBAXY-2012R5-55386

PATIENT

DRUGS (3)
  1. CEPHALEXIN [Suspect]
     Indication: WOUND INFECTION
     Dosage: 500 MG, TID
     Route: 048
     Dates: start: 20120322, end: 20120323
  2. APRESOLINA [Concomitant]
     Indication: HYPERTENSION
     Dosage: 25 MG, QD
     Route: 065
  3. METHYLDOPA [Concomitant]
     Indication: HYPERTENSION
     Dosage: UNK
     Route: 065

REACTIONS (6)
  - ERYTHEMA [None]
  - SKIN EXFOLIATION [None]
  - PRURITUS GENERALISED [None]
  - SWELLING FACE [None]
  - OEDEMA PERIPHERAL [None]
  - SKIN ULCER [None]
